FAERS Safety Report 10208579 (Version 1)
Quarter: 2014Q2

REPORT INFORMATION
  Report Type: Spontaneous
  Country: US (occurrence: US)
  Receive Date: 20140530
  Receipt Date: 20140530
  Transmission Date: 20141212
  Serious: No
  Sender: FDA-Public Use
  Company Number: US-BAYER-2014-078171

PATIENT
  Age: 62 Year
  Sex: Male

DRUGS (2)
  1. XOFIGO [Suspect]
     Indication: PROSTATE CANCER
     Dosage: UNK
     Dates: start: 20140306
  2. XOFIGO [Suspect]
     Indication: METASTASES TO BONE

REACTIONS (2)
  - Nausea [Not Recovered/Not Resolved]
  - Vomiting [Not Recovered/Not Resolved]
